FAERS Safety Report 16661885 (Version 1)
Quarter: 2019Q3

REPORT INFORMATION
  Report Type: Spontaneous
  Country: US (occurrence: US)
  Receive Date: 20190802
  Receipt Date: 20190802
  Transmission Date: 20191004
  Serious: Yes (Hospitalization, Other)
  Sender: FDA-Public Use
  Company Number: None

PATIENT
  Age: 19 Year
  Sex: Female
  Weight: 70.7 kg

DRUGS (4)
  1. METHYLPREDNISOLONE 4 MG TAB [Concomitant]
     Dates: start: 20190417
  2. NITROFURANTOIN MONOHYDRATE/MACROCRYSTAL CAPSULE [Suspect]
     Active Substance: NITROFURANTOIN\NITROFURANTOIN MONOHYDRATE
     Indication: URINARY TRACT INFECTION
     Route: 048
  3. METHYLPREDNISOLONE 40 MG IV [Concomitant]
     Dates: start: 20190409, end: 20190413
  4. FUROSEMIDE 20MG TAB [Concomitant]
     Dates: start: 20190406

REACTIONS (7)
  - Ascites [None]
  - Drug-induced liver injury [None]
  - Liver injury [None]
  - Autoimmune hepatitis [None]
  - Liver transplant [None]
  - Hepatic cirrhosis [None]
  - Hepato-lenticular degeneration [None]

NARRATIVE: CASE EVENT DATE: 20190408
